FAERS Safety Report 9009096 (Version 2)
Quarter: 2013Q1

REPORT INFORMATION
  Report Type: Spontaneous
  Country: CN (occurrence: CN)
  Receive Date: 20130111
  Receipt Date: 20130116
  Transmission Date: 20140127
  Serious: No
  Sender: FDA-Public Use
  Company Number: CN-ASTRAZENECA-2013SE01049

PATIENT
  Age: 82 Year
  Sex: Female

DRUGS (1)
  1. DIPRIVAN [Suspect]
     Indication: ENDOSCOPY
     Route: 042
     Dates: start: 201212, end: 201212

REACTIONS (4)
  - Ammonia increased [Recovered/Resolved]
  - Agitation [Recovered/Resolved]
  - Dysphoria [Recovered/Resolved]
  - Abnormal behaviour [Recovered/Resolved]
